FAERS Safety Report 9240300 (Version 1)
Quarter: 2013Q1

REPORT INFORMATION
  Report Type: Spontaneous
  Country: US (occurrence: None)
  Receive Date: 20121102
  Receipt Date: 20121102
  Transmission Date: 20140127
  Serious: Yes (Hospitalization)
  Sender: FDA-Public Use
  Company Number: 134145

PATIENT
  Age: 70 Year
  Sex: Male
  Weight: 76 kg

DRUGS (1)
  1. LEUCOVORIN CALCIUM [Suspect]
     Dosage: 400 MG/M2 DAY ON DAY ONE EVERY 14 DAYS

REACTIONS (1)
  - Infection [None]
